FAERS Safety Report 6976315-X (Version None)
Quarter: 2010Q3

REPORT INFORMATION
  Report Type: 
  Country: None (occurrence: None)
  Receive Date: 20100910
  Receipt Date: 20090423
  Transmission Date: 20110219
  Serious: No
  Sender: FDA-Public Use
  Company Number: US-WYE-H09097909

PATIENT
  Sex: Female

DRUGS (5)
  1. PRISTIQ [Suspect]
     Indication: DEPRESSION
     Route: 048
     Dates: start: 20090301
  2. PREMARIN [Concomitant]
  3. OMEPRAZOLE [Concomitant]
  4. XANAX [Concomitant]
  5. SYNTHROID [Concomitant]

REACTIONS (5)
  - BACK INJURY [None]
  - CONDITION AGGRAVATED [None]
  - FALL [None]
  - INSOMNIA [None]
  - NAUSEA [None]
